FAERS Safety Report 9444509 (Version 1)
Quarter: 2013Q3

REPORT INFORMATION
  Report Type: Spontaneous
  Country: US (occurrence: None)
  Receive Date: 20130805
  Receipt Date: 20130805
  Transmission Date: 20140515
  Serious: Yes (Hospitalization, Other)
  Sender: FDA-Public Use
  Company Number: TPA2013A07201

PATIENT
  Age: 43 Year
  Sex: Male

DRUGS (3)
  1. EDARBYCLOR [Suspect]
     Indication: HYPERTENSION
     Route: 048
     Dates: start: 20130711, end: 20130722
  2. UNKNOWN MEDS (ALL OTHER THERAPEUTIC PRODUCTS) [Concomitant]
  3. PRISTIQ (DESVENLAFAXINE SUCCINATE) [Concomitant]

REACTIONS (3)
  - Malaise [None]
  - Asthenia [None]
  - Renal failure [None]
